FAERS Safety Report 7582966-4 (Version None)
Quarter: 2011Q2

REPORT INFORMATION
  Report Type: 
  Country: None (occurrence: None)
  Receive Date: 20110627
  Receipt Date: 20110627
  Transmission Date: 20111010
  Serious: Yes (Life-Threatening)
  Sender: FDA-Public Use
  Company Number: None

PATIENT
  Age: 27 Year
  Sex: Female
  Weight: 87.0906 kg

DRUGS (1)
  1. CYMBALTA [Suspect]
     Indication: DEPRESSION
     Dosage: 60MG ONCE A DAY PO
     Route: 048
     Dates: start: 20101201, end: 20110612

REACTIONS (10)
  - ASTHENIA [None]
  - QUALITY OF LIFE DECREASED [None]
  - VOMITING [None]
  - VERTIGO [None]
  - DRUG EXPOSURE DURING PREGNANCY [None]
  - MALAISE [None]
  - NAUSEA [None]
  - BLIGHTED OVUM [None]
  - HEADACHE [None]
  - ABDOMINAL PAIN UPPER [None]
